FAERS Safety Report 7479947-8 (Version None)
Quarter: 2011Q2

REPORT INFORMATION
  Report Type: 
  Country: None (occurrence: None)
  Receive Date: 20110516
  Receipt Date: 20110505
  Transmission Date: 20111010
  Serious: Yes (Hospitalization)
  Sender: FDA-Public Use
  Company Number: US-BIOGENIDEC-2011BI016968

PATIENT
  Age: 36 Year
  Sex: Male

DRUGS (2)
  1. CLARITIN [Concomitant]
     Indication: PREMEDICATION
     Dates: start: 20110301
  2. TYSABRI [Suspect]
     Indication: MULTIPLE SCLEROSIS
     Route: 042
     Dates: start: 20110215

REACTIONS (2)
  - PAIN [None]
  - HEADACHE [None]
